FAERS Safety Report 20734056 (Version 14)
Quarter: 2023Q2

REPORT INFORMATION
  Report Type: Spontaneous
  Country: CA (occurrence: CA)
  Receive Date: 20220421
  Receipt Date: 20230612
  Transmission Date: 20230722
  Serious: Yes (Hospitalization, Other)
  Sender: FDA-Public Use
  Company Number: CA-CELLTRION INC.-2022CA004896

PATIENT

DRUGS (9)
  1. INFLECTRA [Suspect]
     Active Substance: INFLIXIMAB-DYYB
     Indication: Colitis ulcerative
     Dosage: 1 DF WEEK 0 AND 2 IN HOSPITAL (UNKNOWN DOSE)
     Route: 042
     Dates: start: 20220310, end: 20220324
  2. INFLECTRA [Suspect]
     Active Substance: INFLIXIMAB-DYYB
     Dosage: 1 DF WEEK 0 AND 2 IN HOSPITAL (UNKNOWN DOSE)
     Route: 042
     Dates: start: 20220324
  3. INFLECTRA [Suspect]
     Active Substance: INFLIXIMAB-DYYB
     Dosage: 300 MG, AT WEEK 6 THEN Q 8 WEEKS
     Route: 042
     Dates: start: 20220421, end: 20220823
  4. INFLECTRA [Suspect]
     Active Substance: INFLIXIMAB-DYYB
     Dosage: 300 MG, AT WEEK 6 THEN Q 8 WEEKS
     Route: 042
     Dates: start: 20220817
  5. INFLECTRA [Suspect]
     Active Substance: INFLIXIMAB-DYYB
     Dosage: 300 MG, AT WEEK 6 THEN Q 8 WEEKS
     Route: 042
     Dates: start: 20220823
  6. INFLECTRA [Suspect]
     Active Substance: INFLIXIMAB-DYYB
     Dosage: 400MG, EVERY 6 WEEKS
     Route: 042
     Dates: start: 20221115, end: 20230207
  7. INFLECTRA [Suspect]
     Active Substance: INFLIXIMAB-DYYB
     Dosage: 500MG, Q (EVERY) 5 WEEKS
     Route: 042
     Dates: start: 20230321
  8. PREDNISONE [Concomitant]
     Active Substance: PREDNISONE
     Dosage: UNK
  9. PREDNISONE [Concomitant]
     Active Substance: PREDNISONE
     Dosage: 1 DF DISCONTINUED (DOSAGE INFO: UNKNOWN)
     Route: 065

REACTIONS (34)
  - Malaise [Unknown]
  - Condition aggravated [Not Recovered/Not Resolved]
  - Immunodeficiency [Unknown]
  - Gastrointestinal bacterial infection [Unknown]
  - Haematochezia [Not Recovered/Not Resolved]
  - Haemorrhage [Unknown]
  - Proctitis ulcerative [Not Recovered/Not Resolved]
  - Proctitis haemorrhagic [Not Recovered/Not Resolved]
  - Pneumonia [Not Recovered/Not Resolved]
  - Drug ineffective [Unknown]
  - Off label use [Unknown]
  - Inappropriate schedule of product administration [Unknown]
  - Incontinence [Unknown]
  - Night sweats [Not Recovered/Not Resolved]
  - Pyrexia [Not Recovered/Not Resolved]
  - Chest pain [Not Recovered/Not Resolved]
  - Dyspnoea [Not Recovered/Not Resolved]
  - Pus in stool [Unknown]
  - Nausea [Not Recovered/Not Resolved]
  - Muscular weakness [Not Recovered/Not Resolved]
  - Anxiety [Unknown]
  - Faeces discoloured [Unknown]
  - Abdominal pain [Recovering/Resolving]
  - Rectal prolapse [Not Recovered/Not Resolved]
  - Proctalgia [Not Recovered/Not Resolved]
  - Bowel movement irregularity [Recovering/Resolving]
  - Inflammation [Not Recovered/Not Resolved]
  - White blood cell count decreased [Not Recovered/Not Resolved]
  - Red blood cell count decreased [Not Recovered/Not Resolved]
  - Constipation [Unknown]
  - Proctitis [Unknown]
  - Urticaria [Unknown]
  - Eye infection [Unknown]
  - Petechiae [Not Recovered/Not Resolved]

NARRATIVE: CASE EVENT DATE: 20220101
